FAERS Safety Report 14631154 (Version 1)
Quarter: 2018Q1

REPORT INFORMATION
  Report Type: Spontaneous
  Country: US (occurrence: US)
  Receive Date: 20180313
  Receipt Date: 20180313
  Transmission Date: 20180509
  Serious: Yes (Other)
  Sender: FDA-Public Use
  Company Number: US-PFIZER INC-2018097754

PATIENT
  Age: 3 Decade
  Sex: Female

DRUGS (2)
  1. RAPAMYCIN [Concomitant]
     Active Substance: SIROLIMUS
     Indication: NEUROBLASTOMA
     Dosage: UNK
  2. SUTENT [Suspect]
     Active Substance: SUNITINIB MALATE
     Indication: NEUROBLASTOMA
     Dosage: UNK

REACTIONS (2)
  - Abdominal pain upper [Unknown]
  - Product use in unapproved indication [Unknown]
